FAERS Safety Report 10881780 (Version 1)
Quarter: 2015Q1

REPORT INFORMATION
  Report Type: Spontaneous
  Country: US (occurrence: None)
  Receive Date: 20150227
  Receipt Date: 20150227
  Transmission Date: 20150721
  Serious: No
  Sender: FDA-Public Use
  Company Number: None

PATIENT
  Age: 44 Year
  Sex: Female

DRUGS (1)
  1. H.P. ACTHAR [Suspect]
     Active Substance: CORTICOTROPIN
     Indication: MULTIPLE SCLEROSIS
     Dosage: STRENGTH:  80UNITS, DOSE FORM: INJECTABLE, FREQUENCY:  DAILY FOR 5 DAYS, ROUTE:  INTRAMUSCULAR 030
     Route: 030
     Dates: start: 20150217, end: 20150222

REACTIONS (3)
  - Swelling [None]
  - Feeling cold [None]
  - Drug effect decreased [None]

NARRATIVE: CASE EVENT DATE: 20150217
